FAERS Safety Report 9608319 (Version 1)
Quarter: 2013Q4

REPORT INFORMATION
  Report Type: Spontaneous
  Country: JP (occurrence: JP)
  Receive Date: 20131009
  Receipt Date: 20131009
  Transmission Date: 20140711
  Serious: Yes (Death, Life-Threatening)
  Sender: FDA-Public Use
  Company Number: JP-ABBVIE-13P-087-1155896-00

PATIENT
  Age: 68 Year
  Sex: Male
  Weight: 53 kg

DRUGS (9)
  1. CLARITH [Suspect]
     Indication: ATYPICAL MYCOBACTERIAL INFECTION
     Route: 048
     Dates: start: 20090501, end: 20110220
  2. RIFAMPICIN [Concomitant]
     Indication: ATYPICAL MYCOBACTERIAL INFECTION
     Dates: start: 20090430, end: 20100505
  3. SPARA [Concomitant]
     Indication: ATYPICAL MYCOBACTERIAL INFECTION
     Route: 048
     Dates: start: 20090507, end: 20100614
  4. FAROM [Concomitant]
     Indication: ATYPICAL MYCOBACTERIAL INFECTION
     Route: 048
     Dates: start: 20100506, end: 20110220
  5. KANAMYCIN SULFATE [Concomitant]
     Indication: ATYPICAL MYCOBACTERIAL INFECTION
     Dates: start: 20100518, end: 20100611
  6. CRAVIT [Concomitant]
     Indication: ATYPICAL MYCOBACTERIAL INFECTION
     Route: 048
     Dates: start: 20101008, end: 20110220
  7. NORVASC [Concomitant]
     Indication: DISEASE COMPLICATION
     Route: 048
     Dates: end: 20110220
  8. DILAZEP DIHYDROCHLORIDE [Concomitant]
     Indication: DISEASE COMPLICATION
     Route: 048
     Dates: end: 20110220
  9. NOVORAPID [Concomitant]
     Indication: DISEASE COMPLICATION
     Dates: end: 20110220

REACTIONS (2)
  - Interstitial lung disease [Fatal]
  - Interstitial lung disease [Recovering/Resolving]
